FAERS Safety Report 8882779 (Version 1)
Quarter: 2012Q4

REPORT INFORMATION
  Report Type: 
  Country: US (occurrence: US)
  Receive Date: 20121102
  Receipt Date: 20121102
  Transmission Date: 20130627
  Serious: No
  Sender: FDA-Public Use
  Company Number: US-ASTRAZENECA-2011SE66971

PATIENT
  Age: 676 Month
  Sex: Female
  Weight: 99.8 kg

DRUGS (4)
  1. CRESTOR [Suspect]
     Indication: BLOOD CHOLESTEROL INCREASED
     Route: 048
  2. CRESTOR [Suspect]
     Indication: BLOOD CHOLESTEROL INCREASED
     Route: 048
     Dates: start: 201109
  3. SYNTHROID [Concomitant]
     Indication: THYROID DISORDER
  4. ANOTHER STATIN [Concomitant]

REACTIONS (1)
  - Vision blurred [Unknown]
